FAERS Safety Report 7124434-X (Version None)
Quarter: 2010Q4

REPORT INFORMATION
  Report Type: 
  Country: None (occurrence: None)
  Receive Date: 20101126
  Receipt Date: 20100511
  Transmission Date: 20110411
  Serious: Yes (Other)
  Sender: FDA-Public Use
  Company Number: PHHY2010TR32625

PATIENT
  Sex: Male

DRUGS (2)
  1. ESTRADERM [Suspect]
     Route: 064
  2. ESTRADIOL VALERATE [Suspect]
     Route: 062

REACTIONS (3)
  - DRUG EXPOSURE DURING PREGNANCY [None]
  - PREMATURE BABY [None]
  - SMALL FOR DATES BABY [None]
